FAERS Safety Report 16482683 (Version 7)
Quarter: 2021Q3

REPORT INFORMATION
  Report Type: Report from Study
  Country: EG (occurrence: EG)
  Receive Date: 20190627
  Receipt Date: 20210710
  Transmission Date: 20211014
  Serious: Yes (Death, Life-Threatening, Hospitalization, Other)
  Sender: FDA-Public Use
  Company Number: PHHY2019EG147114

PATIENT
  Age: 73 Year
  Sex: Female

DRUGS (14)
  1. FEMARA [Suspect]
     Active Substance: LETROZOLE
     Indication: BREAST CANCER
     Dosage: 2.5 MG, QD
     Route: 048
     Dates: start: 2006
  2. KISQALI [Suspect]
     Active Substance: RIBOCICLIB
     Dosage: UNK
     Route: 065
     Dates: start: 202007
  3. KISQALI [Suspect]
     Active Substance: RIBOCICLIB
     Dosage: 2 DF, QD (TWO TABLETS DAILY)
     Route: 065
  4. SPASMOMEN [Concomitant]
     Active Substance: OTILONIUM BROMIDE
     Dosage: 2 DF, QD (BEFORE MEAL/DAY)
     Route: 065
  5. MILGA [Concomitant]
     Active Substance: BENFOTIAMINE\CYANOCOBALAMIN\PYRIDOXINE HYDROCHLORIDE
     Indication: PRODUCT USED FOR UNKNOWN INDICATION
     Dosage: 1 DF, QD
     Route: 065
  6. KISQALI [Suspect]
     Active Substance: RIBOCICLIB
     Indication: BREAST CANCER METASTATIC
     Dosage: 600 MG, QD (3 TAB ONCE DAILY)
     Route: 048
     Dates: start: 20191220, end: 202002
  7. MIFLONIDE [Concomitant]
     Active Substance: BUDESONIDE
     Indication: PRODUCT USED FOR UNKNOWN INDICATION
     Dosage: UNK
     Route: 065
  8. AFINITOR [Suspect]
     Active Substance: EVEROLIMUS
     Indication: BREAST CANCER
     Dosage: 10 MG, QD
     Route: 048
     Dates: start: 20190617, end: 20190623
  9. AFINITOR [Suspect]
     Active Substance: EVEROLIMUS
     Dosage: 10 MG, QD
     Route: 048
     Dates: start: 201906, end: 20190625
  10. FORADIL [Concomitant]
     Active Substance: FORMOTEROL FUMARATE
     Indication: PRODUCT USED FOR UNKNOWN INDICATION
     Dosage: UNK
     Route: 065
  11. DIGESTIN [Concomitant]
     Indication: PRODUCT USED FOR UNKNOWN INDICATION
     Dosage: 2 DF, QD (AFTER MEAL/DAY)
     Route: 065
  12. DESTIN [Concomitant]
     Indication: PRODUCT USED FOR UNKNOWN INDICATION
     Dosage: 6 DF, QD
     Route: 065
  13. APIDONE [Concomitant]
     Indication: PRODUCT USED FOR UNKNOWN INDICATION
     Dosage: UNK
     Route: 065
  14. SPASMOMEN [Concomitant]
     Active Substance: OTILONIUM BROMIDE
     Indication: PRODUCT USED FOR UNKNOWN INDICATION
     Dosage: 6 DF, QD (BEFORE MEAL/DAY)
     Route: 065

REACTIONS (32)
  - Abdominal pain [Not Recovered/Not Resolved]
  - Productive cough [Recovering/Resolving]
  - Product use in unapproved indication [Unknown]
  - Death [Fatal]
  - Abdominal pain upper [Recovered/Resolved]
  - Cerebrovascular accident [Unknown]
  - Gastritis [Unknown]
  - Dysgeusia [Recovered/Resolved]
  - Rash [Not Recovered/Not Resolved]
  - Fracture pain [Recovering/Resolving]
  - Diarrhoea [Recovered/Resolved]
  - Vision blurred [Unknown]
  - Fatigue [Recovering/Resolving]
  - Vomiting [Recovered/Resolved]
  - Enuresis [Unknown]
  - Femur fracture [Unknown]
  - Therapy non-responder [Unknown]
  - Metastases to liver [Recovered/Resolved]
  - Duodenitis [Recovered/Resolved]
  - Speech disorder [Recovering/Resolving]
  - Asthenia [Recovering/Resolving]
  - Urinary retention [Recovered/Resolved]
  - Drug ineffective [Unknown]
  - Haematochezia [Recovered/Resolved]
  - Headache [Unknown]
  - Rhinorrhoea [Recovering/Resolving]
  - Movement disorder [Unknown]
  - Nasopharyngitis [Recovering/Resolving]
  - Decreased appetite [Recovered/Resolved]
  - Duodenogastric reflux [Recovering/Resolving]
  - Colitis [Recovered/Resolved]
  - Abdominal pain upper [Unknown]

NARRATIVE: CASE EVENT DATE: 2016
